FAERS Safety Report 25216197 (Version 2)
Quarter: 2025Q2

REPORT INFORMATION
  Report Type: Spontaneous
  Country: GB (occurrence: GB)
  Receive Date: 20250418
  Receipt Date: 20250425
  Transmission Date: 20250716
  Serious: Yes (Death, Life-Threatening)
  Sender: ROCHE
  Company Number: GB-MHRA-MED-202504101102207090-CPGJW

PATIENT
  Age: 69 Year
  Sex: Male

DRUGS (1)
  1. ATEZOLIZUMAB [Suspect]
     Active Substance: ATEZOLIZUMAB
     Indication: Lung neoplasm malignant
     Dosage: 1875MG EACH 21 DAY CYCLE
     Route: 065
     Dates: start: 20240418, end: 20250217

REACTIONS (2)
  - Cholecystitis [Unknown]
  - Death [Fatal]

NARRATIVE: CASE EVENT DATE: 20250326
